FAERS Safety Report 9454671 (Version 1)
Quarter: 2013Q3

REPORT INFORMATION
  Report Type: Spontaneous
  Country: US (occurrence: None)
  Receive Date: 20130808
  Receipt Date: 20130808
  Transmission Date: 20140515
  Serious: Yes (Hospitalization)
  Sender: FDA-Public Use
  Company Number: 1213051

PATIENT
  Age: 62 Year
  Sex: Female

DRUGS (1)
  1. NEW SKIN BANDAGE [Suspect]
     Indication: PAIN
     Route: 061
     Dates: start: 20130710, end: 20130722

REACTIONS (5)
  - Application site swelling [None]
  - Application site pain [None]
  - Pyrexia [None]
  - Wrong technique in drug usage process [None]
  - Disease recurrence [None]
